FAERS Safety Report 4460169-X (Version None)
Quarter: 2004Q3

REPORT INFORMATION
  Report Type: 
  Country: None (occurrence: None)
  Receive Date: 20040928
  Receipt Date: 20040113
  Transmission Date: 20050211
  Serious: No
  Sender: FDA-Public Use
  Company Number: US-GLAXOSMITHKLINE-A0492878A

PATIENT

DRUGS (7)
  1. SEREVENT [Suspect]
     Indication: ASTHMA
     Dosage: 50MCG TWICE PER DAY
     Route: 055
  2. THEOPHYLLINE [Concomitant]
  3. PREDNISONE [Concomitant]
  4. AEROBID [Concomitant]
  5. SINGULAIR [Concomitant]
  6. ATROVENT [Concomitant]
  7. ALLERGY SHOTS [Concomitant]

REACTIONS (1)
  - ASTHMA [None]
